FAERS Safety Report 13814402 (Version 1)
Quarter: 2017Q3

REPORT INFORMATION
  Report Type: Spontaneous
  Country: US (occurrence: US)
  Receive Date: 20170731
  Receipt Date: 20170731
  Transmission Date: 20171127
  Serious: Yes (Death, Life-Threatening, Hospitalization)
  Sender: FDA-Public Use
  Company Number: US-TORRENT-00003242

PATIENT
  Age: 17 Year
  Sex: Male

DRUGS (1)
  1. MINOCYCLINE HYDROCHLORIDE. [Suspect]
     Active Substance: MINOCYCLINE HYDROCHLORIDE

REACTIONS (10)
  - Type 1 diabetes mellitus [Unknown]
  - Drug reaction with eosinophilia and systemic symptoms [Fatal]
  - Multiple organ dysfunction syndrome [Fatal]
  - Pemphigoid [Unknown]
  - Thrombocytopenia [Unknown]
  - Arterial thrombosis [Unknown]
  - Renal failure [Unknown]
  - Septic shock [Unknown]
  - Gastrointestinal haemorrhage [Unknown]
  - Autoimmune thyroiditis [Unknown]
